FAERS Safety Report 24211301 (Version 1)
Quarter: 2024Q3

REPORT INFORMATION
  Report Type: Spontaneous
  Country: US (occurrence: None)
  Receive Date: 20240813
  Receipt Date: 20240813
  Transmission Date: 20241017
  Serious: Yes (unspecified)
  Sender: Public
  Company Number: None

PATIENT
  Age: 8 Month
  Sex: Female
  Weight: 8.37 kg

DRUGS (1)
  1. IOVERSOL [Suspect]
     Active Substance: IOVERSOL
     Dosage: 16.74 ML ONCE INTRAVENOUS
     Route: 042
     Dates: start: 20240613, end: 20240613

REACTIONS (3)
  - Rash erythematous [None]
  - Urticaria [None]
  - Contrast media allergy [None]

NARRATIVE: CASE EVENT DATE: 20240613
